FAERS Safety Report 18168838 (Version 1)
Quarter: 2020Q3

REPORT INFORMATION
  Report Type: Spontaneous
  Country: US (occurrence: US)
  Receive Date: 20200818
  Receipt Date: 20200818
  Transmission Date: 20201103
  Serious: No
  Sender: FDA-Public Use
  Company Number: None

PATIENT
  Age: 36 Year
  Sex: Female

DRUGS (1)
  1. ETONOGESTREL AND ETHINYL ESTRADIOL, EXTENDED RELEASE [Suspect]
     Active Substance: ETHINYL ESTRADIOL\ETONOGESTREL
     Route: 067

REACTIONS (4)
  - Nausea [None]
  - Fungal infection [None]
  - Product substitution issue [None]
  - Weight increased [None]

NARRATIVE: CASE EVENT DATE: 202002
